FAERS Safety Report 8574178-2 (Version None)
Quarter: 2012Q2

REPORT INFORMATION
  Report Type: 
  Country: None (occurrence: None)
  Receive Date: 20120423
  Receipt Date: 20100817
  Transmission Date: 20120825
  Serious: Yes (Other)
  Sender: FDA-Public Use
  Company Number: PHHY2010US30689

PATIENT
  Age: 76 Year
  Sex: Male
  Weight: 89 kg

DRUGS (2)
  1. DECITABINE (DECITABINE) [Concomitant]
  2. EXJADE [Suspect]
     Indication: MYELODYSPLASTIC SYNDROME
     Dosage: 500 MG, BID, ORAL
     Route: 048

REACTIONS (3)
  - THROMBOCYTOPENIA [None]
  - BLOOD COUNT ABNORMAL [None]
  - EPISTAXIS [None]
